FAERS Safety Report 19425456 (Version 1)
Quarter: 2021Q2

REPORT INFORMATION
  Report Type: Report from Study
  Country: CA (occurrence: CA)
  Receive Date: 20210617
  Receipt Date: 20210617
  Transmission Date: 20210717
  Serious: Yes (Other)
  Sender: FDA-Public Use
  Company Number: CA-CHIESI-2021CHF02972

PATIENT
  Sex: Female
  Weight: 52.8 kg

DRUGS (1)
  1. DEFERIPRONE [Suspect]
     Active Substance: DEFERIPRONE
     Indication: THALASSAEMIA
     Dosage: 3000 MILLIGRAM, BID
     Route: 048

REACTIONS (2)
  - Platelet count decreased [Unknown]
  - White blood cell count decreased [Unknown]
